FAERS Safety Report 15499271 (Version 1)
Quarter: 2018Q4

REPORT INFORMATION
  Report Type: Spontaneous
  Country: US (occurrence: US)
  Receive Date: 20181007
  Receipt Date: 20181007
  Transmission Date: 20190205
  Serious: No
  Sender: FDA-Public Use
  Company Number: None

PATIENT
  Age: 44 Year
  Sex: Female
  Weight: 72 kg

DRUGS (2)
  1. MULTIVITAMIN [Concomitant]
     Active Substance: VITAMINS
  2. AIMOVIG [Suspect]
     Active Substance: ERENUMAB-AOOE
     Indication: MIGRAINE
     Dosage: ?          QUANTITY:1 INJECTION(S);?
     Route: 058

REACTIONS (9)
  - Vision blurred [None]
  - Pain [None]
  - Head discomfort [None]
  - Musculoskeletal stiffness [None]
  - Feeling abnormal [None]
  - Dizziness [None]
  - Anxiety [None]
  - Migraine [None]
  - Discomfort [None]

NARRATIVE: CASE EVENT DATE: 20180815
